FAERS Safety Report 8089281-3 (Version None)
Quarter: 2012Q1

REPORT INFORMATION
  Report Type: 
  Country: None (occurrence: None)
  Receive Date: 20120128
  Receipt Date: 20110719
  Transmission Date: 20120608
  Serious: No
  Sender: FDA-Public Use
  Company Number: US-ABBOTT-11P-163-0719563-00

PATIENT
  Age: 21 Year
  Sex: Female

DRUGS (5)
  1. HUMIRA [Suspect]
     Indication: CROHN'S DISEASE
     Dates: start: 20110126
  2. REMICADE [Concomitant]
     Indication: PRODUCT USED FOR UNKNOWN INDICATION
  3. CASSAVA [Concomitant]
     Indication: PRODUCT USED FOR UNKNOWN INDICATION
  4. XIFAXAN [Concomitant]
     Indication: PRODUCT USED FOR UNKNOWN INDICATION
  5. UNKNOWN OTHER MED(S) [Concomitant]
     Indication: PRODUCT USED FOR UNKNOWN INDICATION

REACTIONS (2)
  - DRUG INEFFECTIVE [None]
  - CROHN'S DISEASE [None]
